FAERS Safety Report 9896253 (Version 1)
Quarter: 2014Q1

REPORT INFORMATION
  Report Type: Spontaneous
  Country: US (occurrence: US)
  Receive Date: 20140213
  Receipt Date: 20140213
  Transmission Date: 20141002
  Serious: No
  Sender: FDA-Public Use
  Company Number: US-BRISTOL-MYERS SQUIBB COMPANY-17433731

PATIENT
  Age: 56 Year
  Sex: Male
  Weight: 99.77 kg

DRUGS (6)
  1. ABATACEPT SUBQ INJECTION 125MG/ML [Suspect]
     Dates: start: 20121005
  2. PRAVASTATINE [Concomitant]
  3. PLAQUENIL [Concomitant]
  4. METHOTREXATE [Concomitant]
  5. LOVASTATIN [Concomitant]
  6. FOLIC ACID [Concomitant]

REACTIONS (1)
  - Nasopharyngitis [Unknown]
